FAERS Safety Report 4523002-3 (Version None)
Quarter: 2004Q4

REPORT INFORMATION
  Report Type: 
  Country: None (occurrence: None)
  Receive Date: 20041208
  Receipt Date: 20041201
  Transmission Date: 20050328
  Serious: Yes (Death, Hospitalization, Other)
  Sender: FDA-Public Use
  Company Number: 2004084482

PATIENT
  Age: 71 Year
  Sex: Male
  Weight: 78 kg

DRUGS (4)
  1. ATORVASTATIN (ATORVASTATIN) [Suspect]
     Indication: MYOCARDIAL ISCHAEMIA
     Dosage: ORAL
     Route: 048
     Dates: start: 20040501, end: 20040601
  2. LEVOTHYROXINE SODIUM [Concomitant]
  3. SOTALOL HCL [Concomitant]
  4. ASPIRIN [Concomitant]

REACTIONS (11)
  - ARRHYTHMIA [None]
  - BLOOD ALBUMIN DECREASED [None]
  - COAGULOPATHY [None]
  - GENERAL PHYSICAL HEALTH DETERIORATION [None]
  - HEPATIC FAILURE [None]
  - HEPATITIS B [None]
  - HEPATITIS C [None]
  - HEPATITIS FULMINANT [None]
  - MULTI-ORGAN FAILURE [None]
  - RENAL IMPAIRMENT [None]
  - SEPSIS [None]
